FAERS Safety Report 14537164 (Version 1)
Quarter: 2018Q1

REPORT INFORMATION
  Report Type: Spontaneous
  Country: ZA (occurrence: ZA)
  Receive Date: 20180215
  Receipt Date: 20180215
  Transmission Date: 20180509
  Serious: Yes (Other)
  Sender: FDA-Public Use
  Company Number: ZA-SA-2018SA031387

PATIENT
  Sex: Male
  Weight: 87 kg

DRUGS (5)
  1. SALAZOPYRIN [Suspect]
     Active Substance: SULFASALAZINE
     Route: 065
     Dates: start: 1988, end: 2015
  2. METHOTREXATE. [Suspect]
     Active Substance: METHOTREXATE
     Route: 065
     Dates: start: 2000, end: 2015
  3. ORENCIA [Suspect]
     Active Substance: ABATACEPT
     Route: 065
  4. RIDAURA [Suspect]
     Active Substance: AURANOFIN
     Route: 065
     Dates: start: 1988
  5. ARAVA [Suspect]
     Active Substance: LEFLUNOMIDE
     Route: 048
     Dates: start: 2000, end: 2001

REACTIONS (2)
  - Drug ineffective [Unknown]
  - Liver injury [Unknown]
